FAERS Safety Report 18051330 (Version 1)
Quarter: 2020Q3

REPORT INFORMATION
  Report Type: Spontaneous
  Country: AU (occurrence: AU)
  Receive Date: 20200722
  Receipt Date: 20200722
  Transmission Date: 20201103
  Serious: Yes (Hospitalization)
  Sender: FDA-Public Use
  Company Number: AU-UNICHEM PHARMACEUTICALS (USA) INC-UCM202007-000790

PATIENT
  Age: 63 Year
  Sex: Male

DRUGS (8)
  1. LEVETIRACETAM. [Concomitant]
     Active Substance: LEVETIRACETAM
     Indication: EPILEPSY
  2. DIVALPROEX SODIUM. [Suspect]
     Active Substance: DIVALPROEX SODIUM
     Route: 042
  3. LEVETIRACETAM. [Concomitant]
     Active Substance: LEVETIRACETAM
     Route: 042
  4. LACOSAMIDE. [Concomitant]
     Active Substance: LACOSAMIDE
     Indication: EPILEPSY
  5. PHENYTOIN. [Suspect]
     Active Substance: PHENYTOIN
     Indication: EPILEPSY
     Route: 042
  6. DIVALPROEX SODIUM. [Suspect]
     Active Substance: DIVALPROEX SODIUM
     Indication: EPILEPSY
  7. DIVALPROEX SODIUM. [Suspect]
     Active Substance: DIVALPROEX SODIUM
     Dosage: REDUCED DOSE
  8. PHENYTOIN. [Suspect]
     Active Substance: PHENYTOIN

REACTIONS (7)
  - Drug interaction [Recovered/Resolved]
  - Seizure [Recovered/Resolved]
  - Status epilepticus [Recovered/Resolved]
  - Unresponsive to stimuli [Recovered/Resolved]
  - Toxicity to various agents [Recovered/Resolved]
  - Lethargy [Recovered/Resolved]
  - Loss of consciousness [Recovered/Resolved]
